FAERS Safety Report 5266027-5 (Version None)
Quarter: 2007Q1

REPORT INFORMATION
  Report Type: 
  Country: None (occurrence: None)
  Receive Date: 20070313
  Receipt Date: 20070313
  Transmission Date: 20070707
  Serious: Yes (Hospitalization)
  Sender: FDA-Public Use
  Company Number: None

PATIENT
  Sex: Female
  Weight: 40 kg

DRUGS (3)
  1. BACTRIM [Suspect]
     Indication: ESCHERICHIA URINARY TRACT INFECTION
     Dosage: 120 MG BID PO
     Route: 048
     Dates: start: 20070305, end: 20070309
  2. GARDSIL VACCINATION [Concomitant]
  3. TDAP VACCINATION [Concomitant]

REACTIONS (10)
  - ABDOMINAL PAIN [None]
  - BLOOD PRESSURE SYSTOLIC INCREASED [None]
  - CARDIAC MURMUR [None]
  - DIARRHOEA [None]
  - HEADACHE [None]
  - HEART RATE INCREASED [None]
  - NAUSEA [None]
  - NUCHAL RIGIDITY [None]
  - PHOTOPHOBIA [None]
  - SERUM SICKNESS [None]
